FAERS Safety Report 7667970-X (Version None)
Quarter: 2011Q3

REPORT INFORMATION
  Report Type: 
  Country: None (occurrence: None)
  Receive Date: 20110808
  Receipt Date: 20110729
  Transmission Date: 20111222
  Serious: Yes (Hospitalization, Other)
  Sender: FDA-Public Use
  Company Number: US-BIOGENIDEC-2011BI028526

PATIENT
  Age: 45 Year
  Sex: Female

DRUGS (4)
  1. AVONEX [Suspect]
     Route: 030
     Dates: start: 20030801
  2. AVONEX [Suspect]
     Indication: MULTIPLE SCLEROSIS
     Route: 030
     Dates: start: 20000801, end: 20010701
  3. AVONEX [Suspect]
     Route: 030
     Dates: start: 20020801, end: 20030801
  4. AVONEX [Suspect]
     Route: 030
     Dates: start: 20030801

REACTIONS (3)
  - PNEUMONIA ASPIRATION [None]
  - LYMPHOMA [None]
  - MYOCARDIAL INFARCTION [None]
